FAERS Safety Report 17886646 (Version 2)
Quarter: 2020Q2

REPORT INFORMATION
  Report Type: Spontaneous
  Country: DE (occurrence: DE)
  Receive Date: 20200611
  Receipt Date: 20200615
  Transmission Date: 20200714
  Serious: Yes (Hospitalization)
  Sender: FDA-Public Use
  Company Number: DE-MYLANLABS-2020M1055578

PATIENT
  Age: 72 Year
  Sex: Male

DRUGS (7)
  1. RAMIPRIL. [Concomitant]
     Active Substance: RAMIPRIL
     Dosage: 10 MG, 1-0-0-0
  2. ORNITHINE ASPARTATE [Concomitant]
     Active Substance: ORNITHINE ASPARTATE
     Dosage: 315 G, 1-1-1-0
  3. THIAMIN                            /00056101/ [Concomitant]
     Dosage: 200 MG, 1-0-0-0
  4. TORASEMIDE [Suspect]
     Active Substance: TORSEMIDE
     Indication: PRODUCT USED FOR UNKNOWN INDICATION
     Dosage: 10 MILLIGRAM, 1-1-0-0
  5. LACTULOSE. [Concomitant]
     Active Substance: LACTULOSE
     Dosage: NK MG, 10-10-10-0
  6. PROPRANOLOL [Concomitant]
     Active Substance: PROPRANOLOL HYDROCHLORIDE
     Dosage: 10 MG, 1-1-1-0
  7. SPIRONOLACTON [Suspect]
     Active Substance: SPIRONOLACTONE
     Indication: PRODUCT USED FOR UNKNOWN INDICATION
     Dosage: 50 MG, 1-0-0-0

REACTIONS (7)
  - Somnolence [Unknown]
  - Fatigue [Unknown]
  - Electrolyte imbalance [Unknown]
  - Product monitoring error [Unknown]
  - General physical health deterioration [Unknown]
  - Abdominal pain [Unknown]
  - Dehydration [Unknown]
